FAERS Safety Report 5634541-6 (Version None)
Quarter: 2008Q1

REPORT INFORMATION
  Report Type: 
  Country: None (occurrence: None)
  Receive Date: 20080222
  Receipt Date: 20080220
  Transmission Date: 20080703
  Serious: Yes (Death)
  Sender: FDA-Public Use
  Company Number: US-WYE-H02606208

PATIENT
  Sex: Female

DRUGS (30)
  1. SIROLIMUS [Suspect]
     Indication: PROPHYLAXIS AGAINST TRANSPLANT REJECTION
     Route: 048
     Dates: start: 20060601, end: 20060601
  2. SIROLIMUS [Suspect]
     Route: 048
     Dates: start: 20060602, end: 20060810
  3. SIROLIMUS [Suspect]
     Route: 048
     Dates: start: 20060811, end: 20060903
  4. PREDNISONE TAB [Suspect]
     Indication: PROPHYLAXIS AGAINST TRANSPLANT REJECTION
     Route: 048
     Dates: start: 20060507, end: 20060628
  5. PREDNISONE TAB [Suspect]
     Route: 048
     Dates: start: 20060629, end: 20071220
  6. PREDNISONE TAB [Suspect]
     Route: 048
     Dates: start: 20071221
  7. BACTRIM [Concomitant]
     Dosage: NOT PROVIDED
     Route: 065
     Dates: start: 20060511, end: 20060903
  8. NISTATIN [Concomitant]
     Dosage: NOT PROVIDED
     Route: 065
     Dates: start: 20060502
  9. ASCORBIC ACID/ERGOCALCIFEROL/FOLIC ACID/NICOTINAMIDE/PANTHENOL/RETINOL [Concomitant]
     Dosage: NOT PROVIDED
     Route: 065
     Dates: start: 20060729, end: 20060903
  10. ASCORBIC ACID/ERGOCALCIFEROL/FOLIC ACID/NICOTINAMIDE/PANTHENOL/RETINOL [Concomitant]
     Dosage: NOT PROVIDED
     Route: 065
     Dates: start: 20071221
  11. PROCRIT [Concomitant]
     Dosage: NOT PROVIDED
     Route: 065
     Dates: start: 20060712, end: 20060712
  12. FOLIC ACID [Concomitant]
     Dosage: NOT PROVIDED
     Route: 065
     Dates: start: 20060823, end: 20060903
  13. FERROUS SULFATE TAB [Concomitant]
     Dosage: NOT PROVIDED
     Route: 065
     Dates: start: 20060823, end: 20060903
  14. ZELNORM [Concomitant]
     Dosage: NOT PROVIDED
     Route: 065
     Dates: start: 20060816, end: 20060903
  15. PEPCID [Concomitant]
     Dosage: NOT PROVIDED
     Route: 065
     Dates: start: 20060503, end: 20060903
  16. PREVACID [Concomitant]
     Route: 048
  17. FOSAMAX [Concomitant]
     Route: 048
  18. SINEMET [Concomitant]
     Dosage: 25/100 MG/1 TABLET THREE TIMES PER DAY
     Route: 048
  19. DETROL [Concomitant]
     Route: 048
  20. SYNTHROID [Concomitant]
     Route: 048
  21. VANCOMYCIN HYDROCHLORIDE [Concomitant]
     Indication: CLOSTRIDIUM DIFFICILE COLITIS
     Route: 048
     Dates: start: 20071221, end: 20071226
  22. VALCYTE [Concomitant]
     Route: 048
  23. ATARAX [Concomitant]
     Indication: PRURITUS
     Dosage: 50 MG EVERY 8 HOURS PRN
     Route: 045
  24. URSODIOL [Concomitant]
     Route: 048
  25. ULTRAM [Concomitant]
     Indication: PAIN
     Dosage: 50 MG THREE TIMES PER DAY PRN
     Route: 048
  26. LEVAQUIN [Concomitant]
     Indication: URINARY TRACT INFECTION
     Route: 048
     Dates: start: 20071221, end: 20071225
  27. TACROLIMUS [Suspect]
     Route: 048
  28. MYCOPHENOLATE MOFETIL [Suspect]
     Indication: PROPHYLAXIS AGAINST TRANSPLANT REJECTION
     Route: 048
     Dates: start: 20060501, end: 20060723
  29. MYCOPHENOLATE MOFETIL [Suspect]
     Route: 048
     Dates: start: 20060724, end: 20060805
  30. MYCOPHENOLATE MOFETIL [Suspect]
     Dosage: NOT PROVIDED
     Route: 048
     Dates: start: 20060816, end: 20060903

REACTIONS (1)
  - DEATH [None]
